FAERS Safety Report 4298742-4 (Version None)
Quarter: 2004Q1

REPORT INFORMATION
  Report Type: 
  Country: None (occurrence: None)
  Receive Date: 20040126
  Receipt Date: 20030911
  Transmission Date: 20041129
  Serious: No
  Sender: FDA-Public Use
  Company Number: USA030946935

PATIENT
  Sex: Female

DRUGS (2)
  1. STRATTERA [Suspect]
     Dosage: 18 MG/DAY
     Dates: start: 20030910
  2. RITALIN [Concomitant]

REACTIONS (1)
  - ABNORMAL BEHAVIOUR [None]
